FAERS Safety Report 5480378-0 (Version None)
Quarter: 2007Q4

REPORT INFORMATION
  Report Type: 
  Country: None (occurrence: None)
  Receive Date: 20071009
  Receipt Date: 20071001
  Transmission Date: 20080405
  Serious: Yes (Other)
  Sender: FDA-Public Use
  Company Number: GB-JNJFOC-20071000279

PATIENT
  Age: 78 Year
  Sex: Male

DRUGS (2)
  1. INFLIXIMAB [Suspect]
     Indication: RHEUMATOID ARTHRITIS
     Route: 042
  2. METHOTREXATE [Concomitant]
     Dosage: TREATED WITH FOR 9 YEARS

REACTIONS (2)
  - ANGIOCENTRIC LYMPHOMA [None]
  - EPSTEIN-BARR VIRUS INFECTION [None]
